FAERS Safety Report 11096132 (Version 1)
Quarter: 2015Q2

REPORT INFORMATION
  Report Type: Spontaneous
  Country: US (occurrence: None)
  Receive Date: 20150505
  Receipt Date: 20150505
  Transmission Date: 20150821
  Serious: Yes (Hospitalization)
  Sender: FDA-Public Use
  Company Number: INS201504-000147

PATIENT
  Age: 42 Year
  Sex: Female
  Weight: 60.78 kg

DRUGS (2)
  1. SUBSYS [Suspect]
     Active Substance: FENTANYL
     Indication: BACK PAIN
     Dosage: UP TO 4 DOSES A DAY
     Dates: start: 20140904, end: 20140909
  2. ESCITALOPRAM [Suspect]
     Active Substance: ESCITALOPRAM OXALATE
     Indication: DEPRESSION
     Dosage: 20 MG, 1.5 TABLET TOTAL?ATLEAST 8 YEARS AGO

REACTIONS (3)
  - Off label use [None]
  - Drug interaction [None]
  - Serotonin syndrome [None]
